FAERS Safety Report 18903650 (Version 1)
Quarter: 2021Q1

REPORT INFORMATION
  Report Type: Spontaneous
  Country: US (occurrence: US)
  Receive Date: 20210216
  Receipt Date: 20210216
  Transmission Date: 20210420
  Serious: No
  Sender: FDA-Public Use
  Company Number: None

PATIENT
  Age: 81 Year
  Sex: Female

DRUGS (1)
  1. AMBRISENTAN 5MG TABLETS [Suspect]
     Active Substance: AMBRISENTAN
     Indication: PULMONARY HYPERTENSION
     Dosage: 5MG 1QD ORAL
     Route: 048
     Dates: start: 20210122

REACTIONS (3)
  - Hypoxia [None]
  - Condition aggravated [None]
  - Pulmonary arterial pressure increased [None]
